FAERS Safety Report 5723555-3 (Version None)
Quarter: 2008Q2

REPORT INFORMATION
  Report Type: 
  Country: None (occurrence: None)
  Receive Date: 20080425
  Receipt Date: 20080415
  Transmission Date: 20081010
  Serious: Yes (Other)
  Sender: FDA-Public Use
  Company Number: 08H-028-0314187-00

PATIENT
  Age: 24 Year
  Sex: Female

DRUGS (10)
  1. PENTOTHAL [Suspect]
     Indication: INTRACRANIAL PRESSURE INCREASED
     Dosage: 3 MG/KG, ONCE, INTRAVENOUS BOLUS; 5 MG/KG/HR, CONTINUOUS INFUSION; 3 MG/KG/HR, CONTINUOUS INFUSION
  2. SODIUM CHLORIDE 3% (SODIUM CHLORIDE) [Concomitant]
  3. MANNITOL 20% (MANNITOL) [Concomitant]
  4. PROPOFOL [Concomitant]
  5. PHENYTOIN [Concomitant]
  6. NOREPINEPHRINE BITARTRATE [Concomitant]
  7. VASOPRESSIN (VASOPRESSIN) [Concomitant]
  8. ANTIBIOTIC (ANTIBIOTICS) [Concomitant]
  9. MORPHINE [Concomitant]
  10. ROCURONIUM BROMIDE [Concomitant]

REACTIONS (3)
  - HYPERKALAEMIA [None]
  - HYPOKALAEMIA [None]
  - VENTRICULAR TACHYCARDIA [None]
